FAERS Safety Report 4518346-5 (Version None)
Quarter: 2004Q4

REPORT INFORMATION
  Report Type: 
  Country: None (occurrence: None)
  Receive Date: 20041202
  Receipt Date: 20041122
  Transmission Date: 20050328
  Serious: Yes (Death)
  Sender: FDA-Public Use
  Company Number: 2004AC00829

PATIENT
  Age: 61 Year
  Sex: Male

DRUGS (10)
  1. BICALUTAMIDE [Suspect]
     Indication: PROSTATE CANCER
     Dosage: 50 MG DAILY PO
     Route: 048
  2. GOSERELIN [Suspect]
     Indication: PROSTATE CANCER
     Dosage: 3.6 MG MONTH SQ
     Route: 058
  3. DOXORUBICIN [Suspect]
     Indication: LYMPHOCYTIC LEUKAEMIA
     Dosage: 50 MG/SQ M ON DAY 4 OF TREATMENT
     Route: 058
  4. DEXAMETHASONE [Suspect]
     Indication: LYMPHOCYTIC LEUKAEMIA
     Dosage: 40 MG DAILY PO
     Route: 048
  5. CYCLOPHOSPHAMIDE [Suspect]
     Indication: LYMPHOCYTIC LEUKAEMIA
     Dosage: 300 MG/SQ M EVERY 12 HOURS ON DAYS 1 TO 3 OF TREATMENT
     Route: 058
  6. PREDNISONE [Concomitant]
  7. METHOTREXATE [Concomitant]
  8. LEUCOVORIN [Concomitant]
  9. CYTARABINE [Concomitant]
  10. VINCRISTINE [Concomitant]

REACTIONS (10)
  - ACUTE LYMPHOCYTIC LEUKAEMIA [None]
  - ANAEMIA [None]
  - DRUG WITHDRAWAL SYNDROME [None]
  - LEUKAEMIA RECURRENT [None]
  - NEUTROPENIA [None]
  - PROSTATIC SPECIFIC ANTIGEN INCREASED [None]
  - SEPSIS [None]
  - THROMBOCYTOPENIA [None]
  - UNEXPECTED THERAPEUTIC DRUG EFFECT [None]
  - WEIGHT INCREASED [None]
